FAERS Safety Report 13506453 (Version 1)
Quarter: 2017Q2

REPORT INFORMATION
  Report Type: Spontaneous
  Country: US (occurrence: US)
  Receive Date: 20170502
  Receipt Date: 20170502
  Transmission Date: 20170830
  Serious: No
  Sender: FDA-Public Use
  Company Number: US-ROCHE-1346145

PATIENT

DRUGS (7)
  1. AVASTIN [Suspect]
     Active Substance: BEVACIZUMAB
     Dosage: GEMCITABINE/BEVACIZUMAB
     Route: 065
     Dates: start: 20130311
  2. PACLITAXEL. [Concomitant]
     Active Substance: PACLITAXEL
     Route: 065
     Dates: start: 20110310, end: 20120703
  3. CARBOPLATIN. [Concomitant]
     Active Substance: CARBOPLATIN
     Route: 065
     Dates: start: 20110510, end: 20120703
  4. AVASTIN [Suspect]
     Active Substance: BEVACIZUMAB
     Indication: NON-SMALL CELL LUNG CANCER
     Dosage: PACILITAXEL/CARBOPLATIN/BEVACIZUMAB
     Route: 065
     Dates: start: 20110510, end: 20120703
  5. PEMETREXED. [Concomitant]
     Active Substance: PEMETREXED
     Route: 065
     Dates: start: 20110815, end: 20111018
  6. CYTOXAN [Concomitant]
     Active Substance: CYCLOPHOSPHAMIDE
     Route: 065
     Dates: start: 20120731, end: 20130214
  7. GEMCITABINE [Concomitant]
     Active Substance: GEMCITABINE\GEMCITABINE HYDROCHLORIDE
     Route: 065
     Dates: start: 20130311

REACTIONS (5)
  - Therapy non-responder [Unknown]
  - Metastases to bone [Unknown]
  - Metastases to liver [Unknown]
  - Disease recurrence [Unknown]
  - Disease progression [Unknown]

NARRATIVE: CASE EVENT DATE: 20120731
